FAERS Safety Report 20805186 (Version 2)
Quarter: 2022Q3

REPORT INFORMATION
  Report Type: Spontaneous
  Country: US (occurrence: US)
  Receive Date: 20220509
  Receipt Date: 20220919
  Transmission Date: 20221027
  Serious: No
  Sender: FDA-Public Use
  Company Number: US-AMGEN-USASP2022077294

PATIENT
  Age: 0 Year
  Sex: Female
  Weight: 2.95 kg

DRUGS (1)
  1. ERENUMAB [Suspect]
     Active Substance: ERENUMAB
     Indication: Product used for unknown indication
     Dosage: UNK
     Route: 063

REACTIONS (2)
  - Jaundice [Recovering/Resolving]
  - Exposure via breast milk [Unknown]

NARRATIVE: CASE EVENT DATE: 20210101
